FAERS Safety Report 5196449-2 (Version None)
Quarter: 2006Q4

REPORT INFORMATION
  Report Type: 
  Country: None (occurrence: None)
  Receive Date: 20061226
  Receipt Date: 20061215
  Transmission Date: 20070319
  Serious: Yes (Death)
  Sender: FDA-Public Use
  Company Number: 231974

PATIENT
  Age: 50 Year
  Sex: Female

DRUGS (7)
  1. RAPTIVA [Suspect]
     Indication: PSORIASIS
     Dates: start: 20060529, end: 20060817
  2. METHOTREXATE [Suspect]
     Indication: PSORIASIS
     Dosage: 15 MG, 1/WEEK
     Dates: start: 20060225, end: 20060817
  3. FOLACIN (FOLIC ACID) [Concomitant]
  4. ZYPREXA [Concomitant]
  5. VENLAFAXINE HYDROCHLORIDE [Concomitant]
  6. ZOPICLON (ZOPICLONE) [Concomitant]
  7. LEVOTHYROXINE SODIUM [Concomitant]

REACTIONS (2)
  - CONDITION AGGRAVATED [None]
  - PSORIASIS [None]
